FAERS Safety Report 5843842-8 (Version None)
Quarter: 2008Q3

REPORT INFORMATION
  Report Type: 
  Country: None (occurrence: None)
  Receive Date: 20080813
  Receipt Date: 20080804
  Transmission Date: 20090109
  Serious: Yes (Other)
  Sender: FDA-Public Use
  Company Number: PHBS2008ES05172

PATIENT
  Age: 57 Year
  Sex: Female

DRUGS (2)
  1. GLEEVEC [Suspect]
     Indication: CHRONIC MYELOID LEUKAEMIA
     Dosage: 400MG/DAY
     Dates: start: 20050101
  2. GLEEVEC [Suspect]
     Dosage: 300MG/DAY

REACTIONS (7)
  - HIDRADENITIS [None]
  - LICHENOID KERATOSIS [None]
  - PITYRIASIS ROSEA [None]
  - PRURITUS [None]
  - RASH ERYTHEMATOUS [None]
  - SKIN EXFOLIATION [None]
  - SKIN PLAQUE [None]
